FAERS Safety Report 21823333 (Version 3)
Quarter: 2024Q1

REPORT INFORMATION
  Report Type: Report from Study
  Country: FR (occurrence: FR)
  Receive Date: 20230105
  Receipt Date: 20240314
  Transmission Date: 20240410
  Serious: Yes (Hospitalization)
  Sender: FDA-Public Use
  Company Number: FR-INSMED, INC.-2022-02742-FR

PATIENT
  Sex: Female
  Weight: 58 kg

DRUGS (3)
  1. ARIKAYCE [Suspect]
     Active Substance: AMIKACIN
     Indication: Mycobacterium avium complex infection
     Dosage: 590 MILLIGRAM, QD
     Route: 055
     Dates: start: 20220929, end: 20230201
  2. ARIKAYCE [Suspect]
     Active Substance: AMIKACIN
     Indication: Mycobacterium abscessus infection
  3. OXAZEPAM [Concomitant]
     Active Substance: OXAZEPAM
     Indication: Poor quality sleep
     Dosage: 0.5 DOSAGE FORM, BEFORE BED
     Route: 055

REACTIONS (15)
  - Hospitalisation [Unknown]
  - Eating disorder [Unknown]
  - Fear [Unknown]
  - Insomnia [Unknown]
  - Rhinorrhoea [Unknown]
  - Decreased appetite [Recovering/Resolving]
  - Dysgeusia [Recovered/Resolved]
  - Head discomfort [Unknown]
  - Productive cough [Unknown]
  - Cough [Recovering/Resolving]
  - Tinnitus [Unknown]
  - Frequent bowel movements [Unknown]
  - Diarrhoea [Unknown]
  - Fatigue [Unknown]
  - Dyspnoea [Unknown]

NARRATIVE: CASE EVENT DATE: 20220101
